FAERS Safety Report 5095089-3 (Version None)
Quarter: 2006Q3

REPORT INFORMATION
  Report Type: 
  Country: None (occurrence: None)
  Receive Date: 20060901
  Receipt Date: 20060808
  Transmission Date: 20061208
  Serious: Yes (Other)
  Sender: FDA-Public Use
  Company Number: PHEH2006US10183

PATIENT
  Age: 86 Year
  Sex: Female

DRUGS (1)
  1. MIACALCIN [Suspect]
     Dosage: UNK, UNK
     Dates: start: 19910101

REACTIONS (1)
  - CHRONIC OBSTRUCTIVE PULMONARY DISEASE [None]
